FAERS Safety Report 17188170 (Version 1)
Quarter: 2019Q4

REPORT INFORMATION
  Report Type: Spontaneous
  Country: GB (occurrence: GB)
  Receive Date: 20191221
  Receipt Date: 20191221
  Transmission Date: 20200122
  Serious: Yes (Other)
  Sender: FDA-Public Use
  Company Number: GB-TEVA-2019-GB-1154566

PATIENT
  Age: 26 Year
  Sex: Female
  Weight: 76 kg

DRUGS (1)
  1. PHENOXYMETHYLPENICILLIN [Suspect]
     Active Substance: PENICILLIN V
     Dosage: 125MG/5ML
     Dates: start: 20191023

REACTIONS (1)
  - Swollen tongue [Recovered/Resolved]
